FAERS Safety Report 11888441 (Version 1)
Quarter: 2016Q1

REPORT INFORMATION
  Report Type: Spontaneous
  Country: US (occurrence: US)
  Receive Date: 20160105
  Receipt Date: 20160105
  Transmission Date: 20160526
  Serious: No
  Sender: FDA-Public Use
  Company Number: US-DRREDDYS-USA/USA/15/0049173

PATIENT
  Age: 43 Year
  Sex: Female
  Weight: 78.4 kg

DRUGS (2)
  1. HABITROL [Suspect]
     Active Substance: NICOTINE
     Indication: SMOKING CESSATION THERAPY
     Route: 065
     Dates: start: 2010
  2. HABITROL [Suspect]
     Active Substance: NICOTINE
     Route: 065
     Dates: start: 20150701

REACTIONS (2)
  - Product adhesion issue [Unknown]
  - Nicotine dependence [Unknown]
